FAERS Safety Report 11536564 (Version 1)
Quarter: 2015Q3

REPORT INFORMATION
  Report Type: Spontaneous
  Country: US (occurrence: US)
  Receive Date: 20150922
  Receipt Date: 20150922
  Transmission Date: 20151125
  Serious: No
  Sender: FDA-Public Use
  Company Number: ALCN2014US006966

PATIENT
  Sex: Female

DRUGS (1)
  1. CYCLOGYL [Suspect]
     Active Substance: CYCLOPENTOLATE HYDROCHLORIDE
     Route: 047

REACTIONS (3)
  - Ocular hyperaemia [Recovered/Resolved]
  - Lacrimation increased [Recovered/Resolved]
  - Eye irritation [Recovered/Resolved]
